FAERS Safety Report 8339081-1 (Version None)
Quarter: 2012Q2

REPORT INFORMATION
  Report Type: 
  Country: None (occurrence: None)
  Receive Date: 20120507
  Receipt Date: 20120501
  Transmission Date: 20120825
  Serious: Yes (Hospitalization, Other)
  Sender: FDA-Public Use
  Company Number: US-BAYER-2012-007148

PATIENT
  Age: 62 Year
  Sex: Male
  Weight: 64.399 kg

DRUGS (16)
  1. TOLNAFTATE [Concomitant]
  2. ESTRACE [Concomitant]
     Dosage: 0.5 MG, UNK
  3. ACETAMINOPHEN [Concomitant]
     Indication: PREMEDICATION
     Dosage: 500 MG, UNK
  4. VITAMIN D [Concomitant]
     Dosage: 2000 IU, QD
  5. CALCIUM [Concomitant]
     Dosage: 3 TABLETS PER DAY
  6. TIZANIDINE HCL [Concomitant]
     Indication: SLEEP DISORDER THERAPY
     Dosage: 4 MG, HS PRN
  7. MULTIVITAMINS WITH MINERALS [MULTIVITAMINS WITH MINERALS] [Concomitant]
     Dosage: 4 DAILY
  8. VITAMIN C [Concomitant]
     Dosage: 1000 MG, QD
  9. LISINOPRIL [Concomitant]
     Indication: HYPERTENSION
     Dosage: 20 MG, QD
  10. PROBIOTICA [Concomitant]
  11. KETOCONAZOLE [Concomitant]
     Indication: FUNGAL INFECTION
     Dosage: UNK UNK, PRN
  12. BETASERON [Suspect]
     Indication: MULTIPLE SCLEROSIS
     Dosage: 0.25 MG, QOD
     Route: 058
     Dates: start: 19951201
  13. BACLOFEN [Concomitant]
     Dosage: 10 MG/5ML
  14. COD LIVER [Concomitant]
  15. COCONUT OIL [Concomitant]
  16. CRANBERRY [Concomitant]
     Dosage: 1000 MG, UNK

REACTIONS (6)
  - DECUBITUS ULCER [None]
  - HEADACHE [None]
  - KIDNEY INFECTION [None]
  - PYREXIA [None]
  - CYSTITIS [None]
  - LOCALISED INFECTION [None]
